FAERS Safety Report 19073665 (Version 1)
Quarter: 2021Q1

REPORT INFORMATION
  Report Type: Spontaneous
  Country: AT (occurrence: AT)
  Receive Date: 20210330
  Receipt Date: 20210330
  Transmission Date: 20210420
  Serious: Yes (Hospitalization)
  Sender: FDA-Public Use
  Company Number: AT-JNJFOC-20210348101

PATIENT
  Age: 55 Year
  Sex: Male
  Weight: 80 kg

DRUGS (4)
  1. ATORVASTATIN [Concomitant]
     Active Substance: ATORVASTATIN
     Dates: start: 202001
  2. CLOPIDOGREL [Concomitant]
     Active Substance: CLOPIDOGREL BISULFATE
     Dates: start: 202001
  3. TOPAMAX [Suspect]
     Active Substance: TOPIRAMATE
     Indication: MIGRAINE
     Route: 048
  4. TOPAMAX [Suspect]
     Active Substance: TOPIRAMATE
     Route: 048

REACTIONS (4)
  - Fatigue [Recovered/Resolved]
  - Memory impairment [Recovered/Resolved]
  - Ejaculation failure [Recovered/Resolved]
  - Labile blood pressure [Recovered/Resolved]

NARRATIVE: CASE EVENT DATE: 202001
